FAERS Safety Report 10038209 (Version 1)
Quarter: 2014Q1

REPORT INFORMATION
  Report Type: Spontaneous
  Country: US (occurrence: None)
  Receive Date: 20140325
  Receipt Date: 20140325
  Transmission Date: 20141002
  Serious: Yes (Other)
  Sender: FDA-Public Use
  Company Number: None

PATIENT
  Age: 48 Year
  Sex: Male
  Weight: 68.04 kg

DRUGS (1)
  1. KOMBIGLYZE XR [Suspect]
     Indication: TYPE 2 DIABETES MELLITUS
     Dosage: 5/1000
     Route: 048
     Dates: start: 20140214, end: 20140228

REACTIONS (4)
  - Headache [None]
  - Vision blurred [None]
  - Paralysis [None]
  - Rash [None]
